FAERS Safety Report 8079060-5 (Version None)
Quarter: 2012Q1

REPORT INFORMATION
  Report Type: 
  Country: None (occurrence: None)
  Receive Date: 20120128
  Receipt Date: 20110808
  Transmission Date: 20120608
  Serious: No
  Sender: FDA-Public Use
  Company Number: US-ABBOTT-11P-163-0844730-00

PATIENT
  Age: 54 Year
  Sex: Male

DRUGS (6)
  1. DIOVAN [Concomitant]
     Indication: CORONARY ARTERY OCCLUSION
  2. SIMVASTATIN [Concomitant]
     Indication: CORONARY ARTERY OCCLUSION
     Dates: start: 20050101
  3. HUMIRA [Suspect]
     Indication: PSORIASIS
     Dates: start: 20091001
  4. FISH OIL/OMEGA [Concomitant]
     Indication: PRODUCT USED FOR UNKNOWN INDICATION
  5. DIOVAN [Concomitant]
     Indication: HYPERTENSION
     Dates: start: 20050101
  6. ASPIRIN [Concomitant]
     Indication: PRODUCT USED FOR UNKNOWN INDICATION

REACTIONS (1)
  - INJECTION SITE PAIN [None]
